FAERS Safety Report 9847867 (Version 2)
Quarter: 2014Q2

REPORT INFORMATION
  Report Type: Report from Study
  Country: MX (occurrence: MX)
  Receive Date: 20140128
  Receipt Date: 20140520
  Transmission Date: 20141212
  Serious: Yes (Hospitalization, Other)
  Sender: FDA-Public Use
  Company Number: MX-ROCHE-1339014

PATIENT
  Age: 60 Year
  Sex: Female
  Weight: 60.06 kg

DRUGS (5)
  1. LUCENTIS [Suspect]
     Indication: RETINAL DETACHMENT
     Route: 050
     Dates: start: 201310
  2. LUCENTIS [Suspect]
     Indication: RETINAL HAEMORRHAGE
     Dosage: 0.5/0.5 ML
     Route: 050
     Dates: start: 201401
  3. AMPICILLIN [Concomitant]
  4. GLIBENCLAMIDE/METFORMIN HYDROCHLORIDE [Concomitant]
     Dosage: 500/500 MG
     Route: 065
  5. METFORMIN [Concomitant]
     Route: 065
     Dates: start: 200005

REACTIONS (15)
  - Pneumonia [Not Recovered/Not Resolved]
  - Bronchitis [Not Recovered/Not Resolved]
  - Blood glucose fluctuation [Not Recovered/Not Resolved]
  - Blood glucose increased [Recovered/Resolved]
  - Blindness unilateral [Not Recovered/Not Resolved]
  - Off label use [Unknown]
  - Eye disorder [Not Recovered/Not Resolved]
  - Retinal detachment [Recovered/Resolved]
  - Retinal haemorrhage [Recovered/Resolved]
  - Eye discharge [Not Recovered/Not Resolved]
  - Vision blurred [Not Recovered/Not Resolved]
  - Visual acuity reduced [Unknown]
  - Eye irritation [Not Recovered/Not Resolved]
  - Lacrimation increased [Not Recovered/Not Resolved]
  - Vitreous floaters [Not Recovered/Not Resolved]
